FAERS Safety Report 9818624 (Version 1)
Quarter: 2013Q4

REPORT INFORMATION
  Report Type: Spontaneous
  Country: US (occurrence: None)
  Receive Date: 20131223
  Receipt Date: 20131223
  Transmission Date: 20140711
  Serious: No
  Sender: FDA-Public Use
  Company Number: 219331

PATIENT
  Age: 75 Year
  Sex: Female
  Weight: 104 kg

DRUGS (1)
  1. PICATO [Suspect]
     Indication: PRODUCT USED FOR UNKNOWN INDICATION
     Dates: start: 20120827, end: 20120830

REACTIONS (2)
  - Blister [None]
  - Incorrect drug administration duration [None]
